FAERS Safety Report 6157408-6 (Version None)
Quarter: 2009Q2

REPORT INFORMATION
  Report Type: 
  Country: None (occurrence: None)
  Receive Date: 20090416
  Receipt Date: 20090407
  Transmission Date: 20091009
  Serious: Yes (Other)
  Sender: FDA-Public Use
  Company Number: US-PFIZER INC-2009172926

PATIENT
  Sex: Male
  Weight: 77.551 kg

DRUGS (4)
  1. NEURONTIN [Suspect]
     Indication: NERVE INJURY
     Dosage: 5 TIMES A DAY
     Dates: start: 19970819
  2. NEURONTIN [Suspect]
     Indication: NEURALGIA
  3. BACLOFEN [Concomitant]
     Dosage: UNK
  4. ANTIHYPERTENSIVES [Concomitant]

REACTIONS (4)
  - CHEST PAIN [None]
  - DRUG INEFFECTIVE [None]
  - PAIN [None]
  - PAIN IN EXTREMITY [None]
